FAERS Safety Report 4751848-5 (Version None)
Quarter: 2005Q3

REPORT INFORMATION
  Report Type: 
  Country: None (occurrence: None)
  Receive Date: 20050822
  Receipt Date: 20050706
  Transmission Date: 20060218
  Serious: Yes (Other)
  Sender: FDA-Public Use
  Company Number: PHEH2005US07475

PATIENT
  Age: 67 Year
  Sex: Female

DRUGS (2)
  1. ZELNORM [Suspect]
     Indication: IRRITABLE BOWEL SYNDROME
     Dosage: 6 MG, BID, ORAL
     Route: 048
     Dates: start: 20041001
  2. LIPITOR [Concomitant]

REACTIONS (3)
  - CRYING [None]
  - DEPRESSION [None]
  - DRUG INEFFECTIVE [None]
